APPROVED DRUG PRODUCT: AMINOSYN-HBC 7% IN PLASTIC CONTAINER
Active Ingredient: AMINO ACIDS
Strength: 7% (7GM/100ML)
Dosage Form/Route: INJECTABLE;INJECTION
Application: N019400 | Product #001
Applicant: ABBOTT LABORATORIES PHARMACEUTICAL PRODUCTS DIV
Approved: Jul 23, 1986 | RLD: No | RS: No | Type: DISCN